FAERS Safety Report 8830518 (Version 1)
Quarter: 2012Q4

REPORT INFORMATION
  Report Type: 
  Country: JP (occurrence: JP)
  Receive Date: 20121009
  Receipt Date: 20121009
  Transmission Date: 20130627
  Serious: Yes (Hospitalization)
  Sender: FDA-Public Use
  Company Number: JP-ELI_LILLY_AND_COMPANY-JP201112007112

PATIENT
  Age: 91 Year
  Sex: Female

DRUGS (2)
  1. FORTEO [Suspect]
     Dosage: UNK
     Route: 058
     Dates: start: 201112, end: 201202
  2. FORTEO [Suspect]
     Dosage: UNK
     Route: 058
     Dates: start: 2012, end: 2012

REACTIONS (4)
  - Hospitalisation [Not Recovered/Not Resolved]
  - Decreased appetite [Unknown]
  - Medication error [Recovered/Resolved]
  - Nausea [Unknown]
